FAERS Safety Report 7500366-X (Version None)
Quarter: 2011Q2

REPORT INFORMATION
  Report Type: 
  Country: None (occurrence: None)
  Receive Date: 20110524
  Receipt Date: 20110503
  Transmission Date: 20111010
  Serious: Yes (Hospitalization, Other)
  Sender: FDA-Public Use
  Company Number: US-BAYER-2010-004390

PATIENT
  Age: 16 Year
  Sex: Female
  Weight: 80 kg

DRUGS (8)
  1. PROAIR HFA [Concomitant]
     Dosage: 2 PUFFS
  2. YASMIN [Suspect]
     Dosage: UNK
     Dates: start: 20081125, end: 20090916
  3. AZITHROMYCIN [Concomitant]
     Route: 048
  4. DROSPIRENONE AND ETHINYL ESTRADIOL [Suspect]
     Indication: MENSTRUATION IRREGULAR
     Dosage: UNK
     Route: 048
     Dates: start: 20071126, end: 20081125
  5. YASMIN [Suspect]
     Indication: MENSTRUATION IRREGULAR
     Dosage: UNK
     Route: 048
     Dates: start: 20060929, end: 20071125
  6. GLUCOPHAGE [Concomitant]
     Dosage: 500 MG, BID
     Route: 048
  7. METFORMIN HCL [Concomitant]
     Indication: BLOOD GLUCOSE ABNORMAL
     Dosage: UNK
     Route: 048
     Dates: start: 20050830, end: 20070727
  8. ALBUTEROL SULFATE AUTOHALER [Concomitant]
     Dosage: 2.5 MG, PRN

REACTIONS (6)
  - ABDOMINAL PAIN [None]
  - CHOLELITHIASIS [None]
  - VOMITING [None]
  - CHOLECYSTITIS CHRONIC [None]
  - GALLBLADDER DISORDER [None]
  - BILIARY DILATATION [None]
